FAERS Safety Report 8267857-8 (Version None)
Quarter: 2012Q2

REPORT INFORMATION
  Report Type: 
  Country: None (occurrence: None)
  Receive Date: 20120404
  Receipt Date: 20120326
  Transmission Date: 20120825
  Serious: Yes (Life-Threatening, Hospitalization)
  Sender: FDA-Public Use
  Company Number: 2012MA004205

PATIENT
  Age: 79 Year

DRUGS (5)
  1. TERAZOSIN HCL [Concomitant]
  2. MARCUMAR [Concomitant]
  3. LISIDOC [Concomitant]
  4. FINASTERIDE [Suspect]
     Indication: BENIGN PROSTATIC HYPERPLASIA
     Dosage: 5MG;QD;PO
     Route: 048
     Dates: start: 20101101, end: 20110201
  5. XIPAMID [Concomitant]

REACTIONS (2)
  - THROMBOCYTOPENIA [None]
  - HAEMORRHAGIC DIATHESIS [None]
